FAERS Safety Report 16253882 (Version 3)
Quarter: 2019Q3

REPORT INFORMATION
  Report Type: Spontaneous
  Country: US (occurrence: US)
  Receive Date: 20190430
  Receipt Date: 20190709
  Transmission Date: 20191004
  Serious: No
  Sender: FDA-Public Use
  Company Number: US-LUPIN PHARMACEUTICALS INC.-2019-02266

PATIENT
  Age: 48 Year
  Sex: Female
  Weight: 58.5 kg

DRUGS (1)
  1. OSELTAMIVIR PHOSPHATE CAPSULES [Suspect]
     Active Substance: OSELTAMIVIR PHOSPHATE
     Indication: INFLUENZA
     Dosage: UNK UNK, BID
     Route: 048
     Dates: start: 20190319, end: 20190320

REACTIONS (4)
  - Abdominal pain [Unknown]
  - Vomiting [Recovered/Resolved]
  - Dyspepsia [Unknown]
  - Abdominal discomfort [Unknown]

NARRATIVE: CASE EVENT DATE: 20190320
